FAERS Safety Report 8537255-8 (Version None)
Quarter: 2012Q3

REPORT INFORMATION
  Report Type: 
  Country: None (occurrence: None)
  Receive Date: 20120725
  Receipt Date: 20120719
  Transmission Date: 20120928
  Serious: Yes (Life-Threatening, Hospitalization, Other)
  Sender: FDA-Public Use
  Company Number: IT-PFIZER INC-2012146792

PATIENT
  Age: 68 Year
  Sex: Female

DRUGS (10)
  1. SINTROM [Concomitant]
     Indication: ATRIAL FIBRILLATION
     Dosage: 4 MG, UNK
     Route: 048
  2. SUTENT [Suspect]
     Indication: RENAL CELL CARCINOMA
     Dosage: 50 MG, CYCLIC
     Route: 048
     Dates: start: 20120316, end: 20120328
  3. FLECAINIDE [Concomitant]
     Dosage: 100 MG, UNK
     Route: 048
     Dates: start: 20120313, end: 20120328
  4. DIAZEPAM [Concomitant]
     Dosage: 22.5 MG, UNK
     Route: 048
     Dates: start: 20120313, end: 20120328
  5. PANTOPRAZOLE SODIUM [Concomitant]
     Dosage: 40 MG, UNK
     Route: 048
     Dates: start: 20120313, end: 20120328
  6. BROMAZEPAM [Concomitant]
     Dosage: 20 GTT, UNK
     Route: 048
     Dates: start: 20120313, end: 20120328
  7. LEVOTHYROXINE SODIUM [Concomitant]
     Dosage: 50 UG, UNK
     Route: 048
     Dates: start: 20120313, end: 20120328
  8. ZOPRANOL [Concomitant]
     Dosage: 30 MG, UNK
     Route: 048
     Dates: start: 20120313, end: 20120328
  9. ATENOLOL [Concomitant]
     Dosage: 50 MG, UNK
     Route: 048
     Dates: start: 20120313, end: 20120328
  10. GAVISCON [Concomitant]
     Dosage: 10 ML, UNK
     Route: 048
     Dates: start: 20120313, end: 20120328

REACTIONS (3)
  - HAEMATOMA [None]
  - CEREBRAL HAEMORRHAGE [None]
  - HEMIPLEGIA [None]
